FAERS Safety Report 14517960 (Version 2)
Quarter: 2018Q1

REPORT INFORMATION
  Report Type: Report from Study
  Country: US (occurrence: US)
  Receive Date: 20180212
  Receipt Date: 20180226
  Transmission Date: 20180509
  Serious: Yes (Life-Threatening, Hospitalization, Other)
  Sender: FDA-Public Use
  Company Number: US-BRISTOL-MYERS SQUIBB COMPANY-BMS-2018-011881

PATIENT
  Age: 71 Year
  Sex: Male
  Weight: 47.63 kg

DRUGS (2)
  1. NIVOLUMAB [Suspect]
     Active Substance: NIVOLUMAB
     Indication: TRANSITIONAL CELL CARCINOMA
     Dosage: 3 MG/KG, UNK (TOTAL DOSE 143 MG)
     Route: 042
     Dates: start: 20180116, end: 20180116
  2. CABOZANTINIB [Suspect]
     Active Substance: CABOZANTINIB
     Indication: TRANSITIONAL CELL CARCINOMA
     Dosage: 40 MG, QD (TOTAL DOSE 320 MG)
     Route: 048
     Dates: start: 20180116, end: 20180123

REACTIONS (7)
  - Alanine aminotransferase increased [Unknown]
  - Respiratory failure [Unknown]
  - Upper respiratory tract infection [Unknown]
  - Tumour pain [Unknown]
  - Aspartate aminotransferase increased [Unknown]
  - Dehydration [Unknown]
  - Urinary tract infection [Unknown]

NARRATIVE: CASE EVENT DATE: 20180124
